FAERS Safety Report 8061798-7 (Version None)
Quarter: 2012Q1

REPORT INFORMATION
  Report Type: 
  Country: None (occurrence: None)
  Receive Date: 20120123
  Receipt Date: 20090914
  Transmission Date: 20120608
  Serious: Yes (Other)
  Sender: FDA-Public Use
  Company Number: US-BAYER-200921751NA

PATIENT
  Age: 23 Year
  Sex: Female
  Weight: 70.455 kg

DRUGS (39)
  1. OMNISCAN [Suspect]
     Dosage: UNK, ONCE
     Dates: start: 20040629, end: 20040629
  2. EPOGEN [Concomitant]
  3. ARAVA [Concomitant]
  4. PLAQUENIL [Concomitant]
  5. OPTIMARK [Suspect]
     Indication: NUCLEAR MAGNETIC RESONANCE IMAGING ABDOMINAL
     Route: 042
     Dates: start: 20060228, end: 20060228
  6. CARDIZEM CD [Concomitant]
  7. LEVOTHYROXINE SODIUM [Concomitant]
  8. PHOSLO [Concomitant]
  9. FOLIC ACID [Concomitant]
  10. CYTOXAN [Concomitant]
  11. NORVASC [Concomitant]
  12. OPTIMARK [Suspect]
     Indication: NUCLEAR MAGNETIC RESONANCE IMAGING BRAIN
     Route: 042
     Dates: start: 20060315, end: 20060315
  13. ATROVENT [Concomitant]
  14. VALPROIC ACID [Concomitant]
  15. POTASSIUM CHLORIDE [Concomitant]
  16. METRONIDAZOLE [Concomitant]
  17. LEVAQUIN [Concomitant]
  18. OMNISCAN [Suspect]
     Indication: NUCLEAR MAGNETIC RESONANCE IMAGING BRAIN
     Dosage: UNK, ONCE
     Dates: start: 20040218, end: 20040218
  19. COUMADIN [Concomitant]
  20. NEURONTIN [Concomitant]
  21. ALBUTEROL [Concomitant]
  22. MORPHINE SULFATE [Concomitant]
  23. MAGNEVIST [Suspect]
     Indication: NUCLEAR MAGNETIC RESONANCE IMAGING BRAIN
  24. OMNISCAN [Suspect]
     Dosage: UNK, ONCE
     Dates: start: 20040405, end: 20040405
  25. NEPHROCAPS [VIT C,VIT H,B12,B9,B3,PANTOTHEN AC,B6,B2,B1 HCL] [Concomitant]
  26. MEGESTROL ACETATE [Concomitant]
  27. DARVOCET [Concomitant]
  28. AMOXICILLIN AND CLAVULANATE POTASSIUM [Concomitant]
  29. ZOSYN [Concomitant]
  30. OMNISCAN [Suspect]
     Dosage: UNK UNK, ONCE
     Dates: start: 20040505, end: 20040505
  31. PHENYTOIN [Concomitant]
  32. PREDNISONE [Concomitant]
  33. FENTANYL [Concomitant]
  34. HYDROMORPHONE HCL [Concomitant]
  35. OMNISCAN [Suspect]
     Indication: NUCLEAR MAGNETIC RESONANCE IMAGING
     Dosage: UNK UNK, ONCE
     Dates: start: 20040212, end: 20040212
  36. PREVACID [Concomitant]
  37. CALCIUM W/VITAMINS NOS [Concomitant]
  38. INSULIN [Concomitant]
  39. VASOTEC [Concomitant]

REACTIONS (15)
  - NEPHROGENIC SYSTEMIC FIBROSIS [None]
  - SUBCUTANEOUS NODULE [None]
  - PERIPHERAL ISCHAEMIA [None]
  - SKIN HYPERPIGMENTATION [None]
  - SKIN DISORDER [None]
  - MOBILITY DECREASED [None]
  - DRY SKIN [None]
  - SKIN TIGHTNESS [None]
  - PERONEAL NERVE PALSY [None]
  - OEDEMA [None]
  - PAIN [None]
  - SKIN WARM [None]
  - HYPERKERATOSIS [None]
  - EXTREMITY CONTRACTURE [None]
  - SKIN DEPIGMENTATION [None]
